FAERS Safety Report 5977765-0 (Version None)
Quarter: 2008Q4

REPORT INFORMATION
  Report Type: 
  Country: None (occurrence: None)
  Receive Date: 20081202
  Receipt Date: 20081202
  Transmission Date: 20090506
  Serious: Yes (Death)
  Sender: FDA-Public Use
  Company Number: None

PATIENT
  Sex: Male
  Weight: 99.7913 kg

DRUGS (7)
  1. METHADONE HCL [Suspect]
     Dosage: 10MG UNSURE PO
     Route: 048
     Dates: start: 20080616, end: 20080619
  2. LIBRIUM [Concomitant]
  3. KLONOPIN [Concomitant]
  4. NEURONTIN [Concomitant]
  5. OXYCONTIN [Concomitant]
  6. DURAGESIC-100 [Concomitant]
  7. ... [Concomitant]

REACTIONS (1)
  - DRUG TOXICITY [None]
